FAERS Safety Report 6245027-2 (Version None)
Quarter: 2009Q2

REPORT INFORMATION
  Report Type: 
  Country: None (occurrence: None)
  Receive Date: 20090623
  Receipt Date: 20090623
  Transmission Date: 20091009
  Serious: No
  Sender: FDA-Public Use
  Company Number: None

PATIENT
  Age: 52 Year
  Sex: Female
  Weight: 66.2252 kg

DRUGS (1)
  1. FLUOXETINE [Suspect]
     Indication: MENOPAUSAL DEPRESSION
     Dosage: 1-20 MG CAPSULE ONCE A DAY PO
     Route: 048
     Dates: start: 20090509, end: 20090617

REACTIONS (2)
  - ORF [None]
  - PAIN [None]
